FAERS Safety Report 4361110-0 (Version None)
Quarter: 2004Q2

REPORT INFORMATION
  Report Type: 
  Country: None (occurrence: None)
  Receive Date: 20040520
  Receipt Date: 20040316
  Transmission Date: 20050107
  Serious: Yes (Life-Threatening, Disabling, Other)
  Sender: FDA-Public Use
  Company Number: JP-MERCK-0403USA01721

PATIENT
  Age: 66 Year
  Sex: Male

DRUGS (14)
  1. CLOSTRIDIUM BUTYRICUM (AS DRUG) [Concomitant]
     Route: 065
  2. [THERAPY UNSPECIFIED] [Concomitant]
     Route: 048
     Dates: start: 20040305
  3. [THERAPY UNSPECIFIED] [Concomitant]
     Route: 048
     Dates: start: 20040306, end: 20040317
  4. ALBUMIN TANNATE [Concomitant]
     Route: 048
     Dates: start: 20040226, end: 20040308
  5. AMLODIPINE [Concomitant]
     Route: 048
     Dates: start: 20000101
  6. FUNGIZONE [Concomitant]
     Route: 048
     Dates: start: 20040306, end: 20040317
  7. ROCALTROL [Concomitant]
     Route: 048
     Dates: start: 20000101
  8. CALCIUM CARBONATE [Concomitant]
     Route: 048
     Dates: start: 20040304
  9. PEPCID [Suspect]
     Indication: GASTRIC ULCER
     Route: 048
     Dates: start: 20040220, end: 20040308
  10. LASIX [Concomitant]
     Route: 048
     Dates: start: 20040221, end: 20040227
  11. FLUITRAN [Concomitant]
     Route: 048
     Dates: start: 20040221, end: 20040227
  12. DIOVAN [Concomitant]
     Route: 048
     Dates: start: 20040328
  13. VANCOMYCIN [Concomitant]
     Route: 048
     Dates: start: 20040301, end: 20040303
  14. VITAMEDIN [Concomitant]
     Route: 048
     Dates: start: 20040220, end: 20040308

REACTIONS (3)
  - AGRANULOCYTOSIS [None]
  - APLASIA PURE RED CELL [None]
  - LYMPHOCYTE STIMULATION TEST POSITIVE [None]
